FAERS Safety Report 13460904 (Version 1)
Quarter: 2017Q2

REPORT INFORMATION
  Report Type: Report from Study
  Country: CZ (occurrence: CZ)
  Receive Date: 20170420
  Receipt Date: 20170420
  Transmission Date: 20170830
  Serious: Yes (Hospitalization)
  Sender: FDA-Public Use
  Company Number: CZ-ROCHE-1490411

PATIENT
  Age: 20 Year
  Sex: Female
  Weight: 53 kg

DRUGS (41)
  1. OCRELIZUMAB [Suspect]
     Active Substance: OCRELIZUMAB
     Route: 042
     Dates: start: 20140801, end: 20140801
  2. OCRELIZUMAB [Suspect]
     Active Substance: OCRELIZUMAB
     Dosage: INTERRUPTED AS PATIENT WENT TO THE TOILET.
     Route: 042
     Dates: start: 20150108, end: 20150108
  3. DITHIADEN [Concomitant]
     Active Substance: BISULEPIN
     Route: 065
     Dates: start: 20140107
  4. HYDROCORTISONE. [Concomitant]
     Active Substance: HYDROCORTISONE
     Indication: INFUSION RELATED REACTION
     Route: 042
     Dates: start: 20130205, end: 20130205
  5. SOLU-MEDROL [Concomitant]
     Active Substance: METHYLPREDNISOLONE SODIUM SUCCINATE
     Route: 042
     Dates: start: 20131212, end: 20131214
  6. PANTOPRAZOL [Concomitant]
     Active Substance: PANTOPRAZOLE SODIUM
     Route: 065
     Dates: start: 20150417
  7. DEOXYMYKOIN [Concomitant]
     Indication: VULVOVAGINAL MYCOTIC INFECTION
     Route: 048
     Dates: start: 20140908, end: 20140915
  8. VITAMIN B12 [Concomitant]
     Active Substance: CYANOCOBALAMIN
     Indication: PROPHYLAXIS
     Route: 030
     Dates: start: 20130723, end: 20130827
  9. OCRELIZUMAB [Suspect]
     Active Substance: OCRELIZUMAB
     Indication: MULTIPLE SCLEROSIS RELAPSE
     Dosage: DOSE INTERRUPTED AS PATIENT WENT TO THE TOILET
     Route: 042
     Dates: start: 20120821, end: 20120821
  10. PLACEBO [Suspect]
     Active Substance: UNSPECIFIED INGREDIENT
     Indication: MULTIPLE SCLEROSIS RELAPSE
     Dosage: CLOSEST BLINDED REBIF KIT STARTED ON 24/JUN/2014 AND LAST DOSE PRIOR TO HERPES SIMPLEX GENITALS TAKE
     Route: 058
     Dates: start: 20120821
  11. OCRELIZUMAB [Suspect]
     Active Substance: OCRELIZUMAB
     Indication: MULTIPLE SCLEROSIS RELAPSE
     Dosage: DOSE INTERRUPTED AS PATIENT WENT TO THE TOILET
     Route: 042
     Dates: start: 20140716, end: 20140716
  12. DITHIADEN [Concomitant]
     Active Substance: BISULEPIN
     Route: 065
     Dates: start: 20130723
  13. DITHIADEN [Concomitant]
     Active Substance: BISULEPIN
     Route: 065
     Dates: start: 20140716
  14. METHYLPREDNISOLONE. [Concomitant]
     Active Substance: METHYLPREDNISOLONE
     Indication: PREMEDICATION
     Route: 065
     Dates: start: 20120821, end: 20120821
  15. METHYLPREDNISOLONE. [Concomitant]
     Active Substance: METHYLPREDNISOLONE
     Route: 065
     Dates: start: 20140801, end: 20140801
  16. SOLU-MEDROL [Concomitant]
     Active Substance: METHYLPREDNISOLONE SODIUM SUCCINATE
     Indication: MULTIPLE SCLEROSIS RELAPSE
     Route: 042
     Dates: start: 20121010, end: 20121012
  17. COTRIMOXAZOL FORTE [Concomitant]
     Active Substance: SULFAMETHOXAZOLE\TRIMETHOPRIM
     Route: 065
     Dates: start: 20150407, end: 20150412
  18. METHYLPREDNISOLONE. [Concomitant]
     Active Substance: METHYLPREDNISOLONE
     Route: 065
     Dates: start: 20120903, end: 20120903
  19. METHYLPREDNISOLONE. [Concomitant]
     Active Substance: METHYLPREDNISOLONE
     Route: 065
     Dates: start: 20140716, end: 20140716
  20. SOLU-MEDROL [Concomitant]
     Active Substance: METHYLPREDNISOLONE SODIUM SUCCINATE
     Route: 042
     Dates: start: 20120704, end: 20120706
  21. CILEST [Concomitant]
     Active Substance: ETHINYL ESTRADIOL\NORGESTIMATE
     Indication: CONTRACEPTION
     Route: 048
     Dates: start: 201201, end: 20121220
  22. DITHIADEN [Concomitant]
     Active Substance: BISULEPIN
     Indication: PREMEDICATION
     Route: 065
     Dates: start: 20120821
  23. DITHIADEN [Concomitant]
     Active Substance: BISULEPIN
     Route: 065
     Dates: start: 20140801
  24. METHYLPREDNISOLONE. [Concomitant]
     Active Substance: METHYLPREDNISOLONE
     Route: 065
     Dates: start: 20130205, end: 20130205
  25. METHYLPREDNISOLONE. [Concomitant]
     Active Substance: METHYLPREDNISOLONE
     Route: 065
     Dates: start: 20130723, end: 20130723
  26. METHYLPREDNISOLONE. [Concomitant]
     Active Substance: METHYLPREDNISOLONE
     Route: 065
     Dates: start: 20150617, end: 20150617
  27. HELICID [Concomitant]
     Indication: PROPHYLAXIS
     Route: 048
     Dates: start: 20121010, end: 20121012
  28. OCRELIZUMAB [Suspect]
     Active Substance: OCRELIZUMAB
     Dosage: DOSE INTERRUPTED DUE TO INFUSION RELATED REACTION
     Route: 042
     Dates: start: 20130205, end: 20130205
  29. OCRELIZUMAB [Suspect]
     Active Substance: OCRELIZUMAB
     Route: 042
     Dates: start: 20140107, end: 20140107
  30. DITHIADEN [Concomitant]
     Active Substance: BISULEPIN
     Route: 065
     Dates: start: 20120903
  31. DITHIADEN [Concomitant]
     Active Substance: BISULEPIN
     Route: 065
     Dates: start: 20150108
  32. DITHIADEN [Concomitant]
     Active Substance: BISULEPIN
     Route: 065
     Dates: start: 20150617
  33. METHYLPREDNISOLONE. [Concomitant]
     Active Substance: METHYLPREDNISOLONE
     Route: 065
     Dates: start: 20150108, end: 20150108
  34. OCRELIZUMAB [Suspect]
     Active Substance: OCRELIZUMAB
     Route: 042
     Dates: start: 20130723, end: 20130723
  35. METHYLPREDNISOLONE. [Concomitant]
     Active Substance: METHYLPREDNISOLONE
     Route: 065
     Dates: start: 20140107, end: 20140107
  36. HELICID [Concomitant]
     Route: 048
     Dates: start: 20131212, end: 20131214
  37. NITROFURANTOIN. [Concomitant]
     Active Substance: NITROFURANTOIN
     Route: 065
     Dates: start: 20150407, end: 20150412
  38. OCRELIZUMAB [Suspect]
     Active Substance: OCRELIZUMAB
     Route: 042
     Dates: start: 20120903, end: 20120903
  39. OCRELIZUMAB [Suspect]
     Active Substance: OCRELIZUMAB
     Route: 042
     Dates: start: 20150617, end: 20150617
  40. DITHIADEN [Concomitant]
     Active Substance: BISULEPIN
     Route: 065
     Dates: start: 20130205
  41. IMODIUM [Concomitant]
     Active Substance: LOPERAMIDE HYDROCHLORIDE
     Route: 065
     Dates: start: 20150603, end: 20150606

REACTIONS (1)
  - Genital herpes simplex [Recovered/Resolved]

NARRATIVE: CASE EVENT DATE: 20141026
